FAERS Safety Report 18546137 (Version 1)
Quarter: 2020Q4

REPORT INFORMATION
  Report Type: Spontaneous
  Country: US (occurrence: US)
  Receive Date: 20201125
  Receipt Date: 20201125
  Transmission Date: 20210114
  Serious: Yes (Other)
  Sender: FDA-Public Use
  Company Number: US-VALIDUS PHARMACEUTICALS LLC-US-2020VAL000987

PATIENT

DRUGS (1)
  1. BUMETANIDE. [Suspect]
     Active Substance: BUMETANIDE
     Indication: DIURETIC THERAPY
     Dosage: 3 DF, UNK
     Route: 048
     Dates: start: 20201108, end: 20201111

REACTIONS (6)
  - Malaise [Unknown]
  - Ill-defined disorder [Unknown]
  - Headache [Recovering/Resolving]
  - Muscle spasms [Not Recovered/Not Resolved]
  - Adverse drug reaction [Unknown]
  - Pain [Unknown]

NARRATIVE: CASE EVENT DATE: 20201108
